FAERS Safety Report 13179530 (Version 2)
Quarter: 2017Q1

REPORT INFORMATION
  Report Type: Spontaneous
  Country: GB (occurrence: GB)
  Receive Date: 20170202
  Receipt Date: 20170216
  Transmission Date: 20170428
  Serious: Yes (Death, Other)
  Sender: FDA-Public Use
  Company Number: GB-TEVA-734249ACC

PATIENT
  Sex: Male

DRUGS (2)
  1. PREDNISOLONE 5 MG [Suspect]
     Active Substance: PREDNISOLONE
  2. ZYTIGA [Suspect]
     Active Substance: ABIRATERONE ACETATE

REACTIONS (1)
  - Death [Fatal]
